FAERS Safety Report 20889554 (Version 1)
Quarter: 2022Q2

REPORT INFORMATION
  Report Type: Spontaneous
  Country: GR (occurrence: GR)
  Receive Date: 20220530
  Receipt Date: 20220530
  Transmission Date: 20220721
  Serious: Yes (Other)
  Sender: FDA-Public Use
  Company Number: GR-TEVA-2022-GR-2039075

PATIENT
  Age: 49 Year
  Sex: Female

DRUGS (1)
  1. COPAXONE [Suspect]
     Active Substance: GLATIRAMER ACETATE
     Indication: Multiple sclerosis
     Dosage: 40MG/ML
     Route: 058
     Dates: start: 202106

REACTIONS (7)
  - Hypersensitivity [Unknown]
  - Loss of consciousness [Unknown]
  - Pain in extremity [Unknown]
  - Movement disorder [Unknown]
  - Dizziness [Unknown]
  - Injection site swelling [Unknown]
  - Hyperaesthesia [Unknown]

NARRATIVE: CASE EVENT DATE: 20220516
